FAERS Safety Report 12847532 (Version 10)
Quarter: 2018Q2

REPORT INFORMATION
  Report Type: Spontaneous
  Country: US (occurrence: US)
  Receive Date: 20161014
  Receipt Date: 20180419
  Transmission Date: 20180711
  Serious: Yes (Other)
  Sender: FDA-Public Use
  Company Number: US-PFIZER INC-2016478816

PATIENT
  Age: 78 Year
  Sex: Female
  Weight: 95.25 kg

DRUGS (1)
  1. XELJANZ [Suspect]
     Active Substance: TOFACITINIB CITRATE
     Indication: RHEUMATOID ARTHRITIS
     Dosage: 5 MG, ONCE DAILY
     Route: 048

REACTIONS (7)
  - Visual impairment [Unknown]
  - Weight increased [Unknown]
  - Asthenia [Unknown]
  - Cough [Unknown]
  - Somnolence [Unknown]
  - Cataract [Unknown]
  - Drug ineffective [Unknown]
